FAERS Safety Report 9785607 (Version 2)
Quarter: 2014Q1

REPORT INFORMATION
  Report Type: Spontaneous
  Country: US (occurrence: US)
  Receive Date: 20131227
  Receipt Date: 20140203
  Transmission Date: 20141002
  Serious: Yes (Hospitalization)
  Sender: FDA-Public Use
  Company Number: US-BAYER-2013-157672

PATIENT
  Age: 78 Year
  Sex: Male
  Weight: 88.2 kg

DRUGS (13)
  1. XARELTO [Suspect]
     Indication: CEREBROVASCULAR ACCIDENT PROPHYLAXIS
     Dosage: 20 MG, QD
     Route: 048
     Dates: start: 20131127
  2. XARELTO [Interacting]
     Indication: ATRIAL FIBRILLATION
  3. ACETYLSALICYLIC ACID({=100 MG) [Interacting]
     Indication: PRODUCT USED FOR UNKNOWN INDICATION
     Dosage: UNK
     Route: 065
  4. AMIODARONE [Concomitant]
     Dosage: UNK
     Route: 065
  5. AMIODARONE [Concomitant]
     Dosage: 20 MG, UNK
     Route: 065
     Dates: start: 20131111
  6. COREG [Concomitant]
     Dosage: UNK
     Route: 065
  7. COREG [Concomitant]
  8. LASIX [Concomitant]
     Dosage: UNK
     Route: 065
  9. LASIX [Concomitant]
  10. CRESTOR [Concomitant]
     Dosage: UNK
     Route: 065
  11. CRESTOR [Concomitant]
     Dosage: 10 MG, UNK
     Route: 065
     Dates: start: 20131202
  12. INSULIN [Concomitant]
     Dosage: UNK
     Route: 065
  13. INSULIN [Concomitant]

REACTIONS (2)
  - Haemoglobin decreased [Unknown]
  - Epistaxis [Recovered/Resolved]
